FAERS Safety Report 19290759 (Version 1)
Quarter: 2021Q2

REPORT INFORMATION
  Report Type: Spontaneous
  Country: CN (occurrence: CN)
  Receive Date: 20210521
  Receipt Date: 20210521
  Transmission Date: 20210717
  Serious: Yes (Other)
  Sender: FDA-Public Use
  Company Number: CN-ROCHE-2832657

PATIENT
  Age: 62 Year
  Sex: Male

DRUGS (3)
  1. MABTHERA [Suspect]
     Active Substance: RITUXIMAB
     Indication: MANTLE CELL LYMPHOMA
     Dosage: DAY 0, 19?JAN?2021?SUBSEQUENT DOSE WAS ADMINISTERED ON 24/FEB/2021
     Route: 041
     Dates: start: 20210119
  2. ZANUBRUTINIB [Concomitant]
     Active Substance: ZANUBRUTINIB
     Indication: MANTLE CELL LYMPHOMA
     Route: 048
     Dates: start: 20210421
  3. BENDAMUSTINE [Concomitant]
     Active Substance: BENDAMUSTINE
     Indication: MANTLE CELL LYMPHOMA
     Dosage: DAY 1?DAY 2, 19?JAN?2021, 24?FEB?2021
     Route: 041

REACTIONS (2)
  - Cytomegalovirus infection [Unknown]
  - Off label use [Unknown]
